FAERS Safety Report 4977804-X (Version None)
Quarter: 2006Q1

REPORT INFORMATION
  Report Type: 
  Country: None (occurrence: None)
  Receive Date: 20060215
  Receipt Date: 20050817
  Transmission Date: 20060701
  Serious: Yes (Other)
  Sender: FDA-Public Use
  Company Number: MC200500733

PATIENT
  Age: 42 Year
  Sex: Male

DRUGS (5)
  1. ANGIOMAX [Suspect]
     Indication: ARTERIOGRAM CORONARY
     Dosage: 0.75 MG/KG, BOLUS, IV BOLUS
     Route: 040
     Dates: start: 20050816, end: 20050816
  2. ANGIOMAX [Suspect]
     Dosage: 1.75 MG/KG, HR
  3. PLAVIX [Concomitant]
  4. ASPIRIN [Concomitant]
  5. HEPARIN [Concomitant]

REACTIONS (2)
  - CHEST PAIN [None]
  - STENT OCCLUSION [None]
